FAERS Safety Report 5388398-1 (Version None)
Quarter: 2007Q3

REPORT INFORMATION
  Report Type: 
  Country: None (occurrence: None)
  Receive Date: 20070716
  Receipt Date: 20051201
  Transmission Date: 20080115
  Serious: Yes (Death, Other)
  Sender: FDA-Public Use
  Company Number: US-PFIZER INC-2003187237US

PATIENT
  Sex: Female
  Weight: 81.6 kg

DRUGS (7)
  1. CAMPTOSAR [Suspect]
     Indication: COLORECTAL CANCER
     Route: 042
     Dates: start: 20031112, end: 20031119
  2. FLUOROURACIL [Suspect]
     Indication: COLORECTAL CANCER
     Route: 042
     Dates: start: 20031112, end: 20031119
  3. LEUCOVORIN CALCIUM [Suspect]
     Indication: COLORECTAL CANCER
     Route: 042
     Dates: start: 20031112, end: 20031119
  4. PLACEBO [Suspect]
     Indication: COLORECTAL CANCER
     Route: 048
     Dates: start: 20031112, end: 20031123
  5. ATENOLOL [Concomitant]
     Indication: HYPERTENSION
     Route: 048
  6. HYZAAR [Concomitant]
     Indication: HYPERTENSION
     Route: 048
     Dates: end: 20031123
  7. ELAVIL [Concomitant]
     Indication: DEPRESSION
     Route: 048
     Dates: end: 20031123

REACTIONS (12)
  - BUNDLE BRANCH BLOCK [None]
  - CONVULSION [None]
  - DIARRHOEA [None]
  - FEBRILE NEUTROPENIA [None]
  - HYPOTENSION [None]
  - LETHARGY [None]
  - MYOCARDIAL INFARCTION [None]
  - PULSE ABSENT [None]
  - RESPIRATORY ARREST [None]
  - SEPTIC SHOCK [None]
  - VENTRICULAR TACHYCARDIA [None]
  - VOMITING [None]
